FAERS Safety Report 4339375-0 (Version None)
Quarter: 2004Q2

REPORT INFORMATION
  Report Type: 
  Country: None (occurrence: None)
  Receive Date: 20040412
  Receipt Date: 20040329
  Transmission Date: 20050107
  Serious: Yes (Hospitalization, Other)
  Sender: FDA-Public Use
  Company Number: 2004015123

PATIENT
  Age: 43 Year
  Sex: Female
  Weight: 61.6892 kg

DRUGS (6)
  1. ZOLOFT [Suspect]
     Indication: ANXIETY
     Dosage: 100 MG (DAILY), ORAL
     Route: 048
     Dates: start: 20030101
  2. ZOLOFT [Suspect]
     Indication: DEPRESSION
     Dosage: 100 MG (DAILY), ORAL
     Route: 048
     Dates: start: 20030101
  3. ZOLOFT [Suspect]
     Indication: POST-TRAUMATIC STRESS DISORDER
     Dosage: 100 MG (DAILY), ORAL
     Route: 048
     Dates: start: 20030101
  4. METAXALONE [Concomitant]
  5. ATENOLOL [Concomitant]
  6. ZOLPIDEM TARTRATE [Concomitant]

REACTIONS (12)
  - ABDOMINAL DISTENSION [None]
  - BALANCE DISORDER [None]
  - DEPRESSION [None]
  - HEPATIC CIRRHOSIS [None]
  - HEPATITIS C [None]
  - JOINT STIFFNESS [None]
  - PAIN IN EXTREMITY [None]
  - POLYARTHRITIS [None]
  - TREATMENT NONCOMPLIANCE [None]
  - UTERINE ENLARGEMENT [None]
  - UTERINE LEIOMYOMA [None]
  - UTERINE PROLAPSE [None]
